FAERS Safety Report 8020948-9 (Version None)
Quarter: 2011Q4

REPORT INFORMATION
  Report Type: 
  Country: None (occurrence: None)
  Receive Date: 20111228
  Receipt Date: 20111215
  Transmission Date: 20120403
  Serious: Yes (Hospitalization, Other)
  Sender: FDA-Public Use
  Company Number: 2011P1014669

PATIENT
  Sex: Male
  Weight: 90.7194 kg

DRUGS (10)
  1. WARFARIN SODIUM [Suspect]
     Indication: HEART VALVE REPLACEMENT
     Dosage: 15-20 MG;QD;PO, 12-15 MG;QD;PO, 50 MG, 75 MG, 80 MG
     Route: 048
     Dates: start: 20111215
  2. WARFARIN SODIUM [Suspect]
     Indication: HEART VALVE REPLACEMENT
     Dosage: 15-20 MG;QD;PO, 12-15 MG;QD;PO, 50 MG, 75 MG, 80 MG
     Route: 048
     Dates: start: 20111204, end: 20111201
  3. WARFARIN SODIUM [Suspect]
     Indication: HEART VALVE REPLACEMENT
     Dosage: 15-20 MG;QD;PO, 12-15 MG;QD;PO, 50 MG, 75 MG, 80 MG
     Route: 048
     Dates: start: 20111213
  4. WARFARIN SODIUM [Suspect]
     Indication: HEART VALVE REPLACEMENT
     Dosage: 15-20 MG;QD;PO, 12-15 MG;QD;PO, 50 MG, 75 MG, 80 MG
     Route: 048
     Dates: start: 20110101
  5. WARFARIN SODIUM [Suspect]
     Indication: HEART VALVE REPLACEMENT
     Dosage: 15-20 MG;QD;PO, 12-15 MG;QD;PO, 50 MG, 75 MG, 80 MG
     Route: 048
     Dates: start: 20111214
  6. SOTALOL HCL [Concomitant]
  7. LISINOPRIL [Concomitant]
  8. ASPIRIN [Concomitant]
  9. COUMADIN [Suspect]
     Dates: start: 20110901, end: 20110101
  10. WARFARIN SODIUM [Suspect]
     Indication: HEART VALVE REPLACEMENT
     Dosage: 10-15 MG;QD;PO
     Route: 048
     Dates: start: 20070101, end: 20110901

REACTIONS (3)
  - INTERNATIONAL NORMALISED RATIO DECREASED [None]
  - ATRIAL FIBRILLATION [None]
  - PRODUCT SUBSTITUTION ISSUE [None]
